FAERS Safety Report 5486550-8 (Version None)
Quarter: 2007Q3

REPORT INFORMATION
  Report Type: 
  Country: None (occurrence: None)
  Receive Date: 20070919
  Receipt Date: 20070514
  Transmission Date: 20080115
  Serious: No
  Sender: FDA-Public Use
  Company Number: 2007RL000231

PATIENT
  Age: 89 Year
  Sex: Male

DRUGS (8)
  1. OMACOR [Suspect]
     Indication: DRUG USE FOR UNKNOWN INDICATION
     Dosage: 4 GM; QD; PO
     Route: 048
     Dates: start: 20070425
  2. NEXIUM [Concomitant]
  3. POTASSIUM CHLORIDE [Concomitant]
  4. COREG [Concomitant]
  5. GLIPIZIDE [Concomitant]
  6. SPIRONOLACTONE [Concomitant]
  7. ASPIRIN [Concomitant]
  8. DOXAZOSIN MESYLATE [Concomitant]

REACTIONS (2)
  - BLOOD PRESSURE FLUCTUATION [None]
  - CONDITION AGGRAVATED [None]
